FAERS Safety Report 25686835 (Version 1)
Quarter: 2025Q3

REPORT INFORMATION
  Report Type: Report from Study
  Country: BR (occurrence: BR)
  Receive Date: 20250816
  Receipt Date: 20250816
  Transmission Date: 20251020
  Serious: Yes (Life-Threatening, Hospitalization, Other)
  Sender: CELLTRION
  Company Number: BR-CELLTRION INC.-2025BR027902

PATIENT

DRUGS (7)
  1. RITUXIMAB-ABBS [Suspect]
     Active Substance: RITUXIMAB-ABBS
     Indication: Oesophagitis
     Route: 042
  2. RITUXIMAB-ABBS [Suspect]
     Active Substance: RITUXIMAB-ABBS
     Route: 042
  3. RITUXIMAB-ABBS [Suspect]
     Active Substance: RITUXIMAB-ABBS
     Route: 042
     Dates: start: 202502
  4. FLUOXETINE [Concomitant]
     Active Substance: FLUOXETINE HYDROCHLORIDE
     Indication: Stress
     Route: 065
     Dates: start: 2003
  5. DIAZEPAM [Concomitant]
     Active Substance: DIAZEPAM
     Indication: Stress
     Route: 065
     Dates: start: 2003
  6. FOLCODINA [Concomitant]
     Indication: Product used for unknown indication
     Route: 065
  7. MYCOPHENOLIC ACID [Concomitant]
     Active Substance: MYCOPHENOLIC ACID
     Indication: Thrombosis
     Route: 065
     Dates: start: 20240607

REACTIONS (9)
  - Aphonia [Recovering/Resolving]
  - Depressed level of consciousness [Unknown]
  - Haemorrhage [Unknown]
  - Dyspnoea [Recovering/Resolving]
  - Oesophagitis [Unknown]
  - Thrombosis [Recovering/Resolving]
  - Herpes virus infection [Recovering/Resolving]
  - Product dose omission issue [Unknown]
  - Drug effective for unapproved indication [Unknown]

NARRATIVE: CASE EVENT DATE: 20250101
